FAERS Safety Report 26046633 (Version 1)
Quarter: 2025Q4

REPORT INFORMATION
  Report Type: Spontaneous
  Country: US (occurrence: None)
  Receive Date: 20251113
  Receipt Date: 20251113
  Transmission Date: 20260118
  Serious: Yes (Other)
  Sender: FDA-CTU
  Company Number: None

PATIENT
  Age: 69 Year
  Sex: Female
  Weight: 72.6 kg

DRUGS (1)
  1. MYCOPHENOLATE MOFETIL [Suspect]
     Active Substance: MYCOPHENOLATE MOFETIL
     Dosage: FREQUENCY : TWICE A DAY;?
     Route: 048
     Dates: start: 20250814, end: 20251030

REACTIONS (2)
  - Skin injury [None]
  - Renal impairment [None]

NARRATIVE: CASE EVENT DATE: 20251023
